FAERS Safety Report 8187524-9 (Version None)
Quarter: 2012Q1

REPORT INFORMATION
  Report Type: 
  Country: None (occurrence: None)
  Receive Date: 20120302
  Receipt Date: 20120220
  Transmission Date: 20120608
  Serious: Yes (Disabling, Other)
  Sender: FDA-Public Use
  Company Number: 017308

PATIENT
  Age: 82 Year
  Sex: Male

DRUGS (2)
  1. PEGAPTANIB SODIUM (PEGAPTANIB SODIUM) UNKNOWN [Suspect]
     Indication: AGE-RELATED MACULAR DEGENERATION
     Dosage: 0.3 MG INTO THE LEFT EYE, INTRAOCULAR
     Route: 031
     Dates: start: 20100525
  2. LEVOFLOXACIN [Concomitant]

REACTIONS (1)
  - CEREBRAL INFARCTION [None]
